FAERS Safety Report 9421940 (Version 1)
Quarter: 2013Q3

REPORT INFORMATION
  Report Type: Spontaneous
  Country: ES (occurrence: ES)
  Receive Date: 20130726
  Receipt Date: 20130726
  Transmission Date: 20140515
  Serious: Yes (Other)
  Sender: FDA-Public Use
  Company Number: ES-ROCHE-1253259

PATIENT
  Age: 72 Year
  Sex: Female

DRUGS (3)
  1. PEGASYS [Suspect]
     Indication: CHRONIC HEPATITIS C
     Dosage: 180 MCG, 1 PRE-FILLED SYRINGE OF 0.5 ML
     Route: 058
     Dates: start: 20130222, end: 20130610
  2. RIBAVIRIN [Interacting]
     Indication: CHRONIC HEPATITIS C
     Route: 048
     Dates: start: 20130222, end: 20130610
  3. INCIVO [Interacting]
     Indication: CHRONIC HEPATITIS C
     Dosage: 375 MG, 168 MG
     Route: 048
     Dates: start: 20130222, end: 20130610

REACTIONS (2)
  - Anaemia [Recovering/Resolving]
  - Drug interaction [Unknown]
